FAERS Safety Report 7729470-8 (Version None)
Quarter: 2011Q3

REPORT INFORMATION
  Report Type: 
  Country: None (occurrence: None)
  Receive Date: 20110831
  Receipt Date: 20110816
  Transmission Date: 20111222
  Serious: Yes (Hospitalization)
  Sender: FDA-Public Use
  Company Number: 2011MA009234

PATIENT
  Age: 49 Year
  Sex: Male
  Weight: 62 kg

DRUGS (10)
  1. PREDNISOLONE [Suspect]
     Indication: SURGERY
  2. PHENYTOIN [Suspect]
     Indication: EPILEPSY
     Dosage: 100 MG; TID
  3. LANSOPRAZOLE [Suspect]
     Indication: SURGERY
  4. SULFAMETHOXAZOLE AND TRIMETHOPRIM [Suspect]
     Indication: SURGERY
  5. ATORVASTATIN [Suspect]
     Indication: SURGERY
  6. NEORAL [Suspect]
     Indication: SURGERY
  7. ALFACALCIDOL (ALFACALCIDOL) [Suspect]
     Indication: SURGERY
  8. ALENDRONATE SODIUM [Suspect]
     Indication: SURGERY
  9. DICLOFENAC SODIUM [Suspect]
     Indication: SURGERY
  10. CANDESARTAN CILEXETIL [Suspect]
     Indication: SURGERY

REACTIONS (11)
  - CONVULSION [None]
  - POST PROCEDURAL COMPLICATION [None]
  - DRUG INTERACTION [None]
  - CONTUSION [None]
  - SPLENIC EMBOLISM [None]
  - ANTIBIOTIC RESISTANT STAPHYLOCOCCUS TEST POSITIVE [None]
  - ANTICONVULSANT DRUG LEVEL DECREASED [None]
  - FALL [None]
  - OPEN WOUND [None]
  - PSEUDOMONAS TEST POSITIVE [None]
  - BLISTER [None]
